FAERS Safety Report 7088437-6 (Version None)
Quarter: 2010Q4

REPORT INFORMATION
  Report Type: 
  Country: None (occurrence: None)
  Receive Date: 20101029
  Receipt Date: 20101018
  Transmission Date: 20110411
  Serious: Yes (Other)
  Sender: FDA-Public Use
  Company Number: 107350

PATIENT
  Sex: Male

DRUGS (1)
  1. ETOMIDATE [Suspect]
     Indication: ANAESTHESIA
     Dosage: 30MG SUBCUTANEOUS
     Route: 058

REACTIONS (2)
  - INJECTION SITE EXTRAVASATION [None]
  - SEDATION [None]
